FAERS Safety Report 10196054 (Version 1)
Quarter: 2014Q2

REPORT INFORMATION
  Report Type: Spontaneous
  Country: KR (occurrence: None)
  Receive Date: 20140521
  Receipt Date: 20140521
  Transmission Date: 20141212
  Serious: Yes (Disabling)
  Sender: FDA-Public Use
  Company Number: KR-20140013

PATIENT
  Age: 65 Year
  Sex: Male

DRUGS (3)
  1. LIPIODOL (ETHIODIZED OIL), UNKNOWN [Suspect]
     Indication: THERAPEUTIC EMBOLISATION
     Route: 013
  2. ADRIAMYCIN (DOXORUBICIN HYDROCHLORIDE) (DOXORUBICIN HYDROCHLORIDE) [Concomitant]
  3. GELFOAM (ABSORBABLE GELATIN SPONGE)  (ABSORBABLE GELATIN SPONGE) [Concomitant]

REACTIONS (6)
  - Spinal cord injury thoracic [None]
  - Off label use [None]
  - Pneumonia aspiration [None]
  - Sepsis [None]
  - Hepatic function abnormal [None]
  - Myelopathy [None]
